FAERS Safety Report 22114386 (Version 1)
Quarter: 2023Q1

REPORT INFORMATION
  Report Type: Spontaneous
  Country: CA (occurrence: CA)
  Receive Date: 20230320
  Receipt Date: 20230320
  Transmission Date: 20230418
  Serious: Yes (Hospitalization)
  Sender: FDA-Public Use
  Company Number: None

PATIENT
  Age: 34 Year
  Sex: Female
  Weight: 84 kg

DRUGS (17)
  1. METHOTREXATE [Suspect]
     Active Substance: METHOTREXATE
     Indication: Non-Hodgkin^s lymphoma
     Dosage: FREQUENCY: CYCLICAL
  2. CYTARABINE [Suspect]
     Active Substance: CYTARABINE
     Indication: Non-Hodgkin^s lymphoma
     Dosage: FREQUENCY: CYCLICAL
  3. RITUXIMAB [Suspect]
     Active Substance: RITUXIMAB
     Indication: Non-Hodgkin^s lymphoma
     Dosage: FREQUENCY: CYCLICAL
  4. THIOTEPA [Suspect]
     Active Substance: THIOTEPA
     Indication: Non-Hodgkin^s lymphoma
     Dosage: FREQUENCY: CYCLICAL
  5. DEXAMETHASONE [Concomitant]
     Active Substance: DEXAMETHASONE
     Dosage: LIQUID INTRA- ARTICULAR
  6. FILGRASTIM [Concomitant]
     Active Substance: FILGRASTIM
  7. FUROSEMIDE [Concomitant]
     Active Substance: FUROSEMIDE
  8. GOSERELIN ACETATE [Concomitant]
     Active Substance: GOSERELIN ACETATE
  9. LORATADINE [Concomitant]
     Active Substance: LORATADINE
  10. LORAZEPAM [Concomitant]
     Active Substance: LORAZEPAM
  11. METOCLOPRAMIDE [Concomitant]
     Active Substance: METOCLOPRAMIDE
  12. OLANZAPINE [Concomitant]
     Active Substance: OLANZAPINE
  13. ONDANSETRON [Concomitant]
     Active Substance: ONDANSETRON
  14. POLYETHYLENE GLYCOL [Concomitant]
     Active Substance: POLYETHYLENE GLYCOL
  15. TRIMETHOPRIM,SULFAMETHOXAZOLE [Concomitant]
  16. TINZAPARIN [Concomitant]
     Active Substance: TINZAPARIN
  17. METHOTREXATE [Suspect]
     Active Substance: METHOTREXATE
     Indication: Non-Hodgkin^s lymphoma
     Dosage: FREQUENCY: CYCLICAL

REACTIONS (3)
  - Bacteraemia [Recovered/Resolved]
  - Febrile neutropenia [Recovered/Resolved]
  - Moraxella infection [Recovered/Resolved]
